FAERS Safety Report 9610925 (Version 3)
Quarter: 2013Q4

REPORT INFORMATION
  Report Type: Spontaneous
  Country: US (occurrence: US)
  Receive Date: 20131009
  Receipt Date: 20131031
  Transmission Date: 20140711
  Serious: Yes (Hospitalization)
  Sender: FDA-Public Use
  Company Number: US-GILEAD-2013-0085054

PATIENT
  Age: 51 Year
  Sex: Female
  Weight: 121.54 kg

DRUGS (19)
  1. LETAIRIS [Suspect]
     Indication: PULMONARY ARTERIAL HYPERTENSION
     Dosage: 5 MG, QD
     Route: 048
     Dates: start: 20130912, end: 20130916
  2. REVATIO [Concomitant]
     Dosage: 20 MG, TID
     Route: 048
  3. SILDENAFIL [Concomitant]
  4. OXYGEN [Concomitant]
     Dosage: 2 L, UNK
     Route: 055
  5. LASIX                              /00032601/ [Concomitant]
     Dosage: 40 MG, BID
     Route: 048
  6. SIMVASTATIN [Concomitant]
     Dosage: 40 MG, QD
     Route: 048
  7. GABAPENTIN [Concomitant]
     Dosage: 300 MG, BID
     Route: 048
  8. LISINOPRIL [Concomitant]
     Dosage: 40 MG, QD
     Route: 048
  9. VITAMIN D                          /00107901/ [Concomitant]
     Dosage: 1000 UNIT, UNK
     Route: 048
  10. ATENOLOL [Concomitant]
     Dosage: 100 MG, QD
     Route: 048
  11. METFORMIN HCL [Concomitant]
     Dosage: 500 MG, BID
     Route: 048
  12. TEMAZEPAM [Concomitant]
     Dosage: 15 MG, QHS, PRN
     Route: 048
  13. LANTUS [Concomitant]
     Dosage: 100 UNITS, QHS
  14. HUMULIN [Concomitant]
     Dosage: 24 UNITS, BID
  15. PROAIR HFA [Concomitant]
     Indication: COUGH
     Dosage: 2 PUFFS QID, PRN
  16. PROAIR HFA [Concomitant]
     Indication: CHEST DISCOMFORT
  17. ADVAIR HFA [Concomitant]
     Dosage: 1 PUFF, BID
  18. COLACE [Concomitant]
     Dosage: 100 MG, BID
     Route: 048
  19. ASPIRIN (E.C.) [Concomitant]
     Dosage: 325 MG, QD
     Route: 048

REACTIONS (11)
  - Malaise [Unknown]
  - Pyrexia [Recovered/Resolved]
  - Blood glucose fluctuation [Unknown]
  - Dysuria [Recovered/Resolved]
  - Disorientation [Recovered/Resolved]
  - Headache [Recovered/Resolved]
  - Swelling [Recovered/Resolved]
  - Asthenia [Recovered/Resolved]
  - Dizziness [Recovered/Resolved]
  - Fatigue [Recovered/Resolved]
  - Rhinorrhoea [Not Recovered/Not Resolved]
